FAERS Safety Report 10024051 (Version 1)
Quarter: 2014Q1

REPORT INFORMATION
  Report Type: Report from Study
  Country: US (occurrence: US)
  Receive Date: 20140320
  Receipt Date: 20140320
  Transmission Date: 20141002
  Serious: Yes (Hospitalization, Other)
  Sender: FDA-Public Use
  Company Number: US-ROCHE-1362181

PATIENT
  Age: 10 Year
  Sex: Female
  Weight: 26.6 kg

DRUGS (16)
  1. CLONAZEPAM [Suspect]
     Indication: PRODUCT USED FOR UNKNOWN INDICATION
     Dosage: 0.25 MG AT AM EVERY DAY
     Route: 065
  2. CLONAZEPAM [Suspect]
     Dosage: AT PM EVERY DAY
     Route: 065
  3. NUTROPIN AQ [Suspect]
     Indication: RENAL FAILURE CHRONIC
     Route: 065
  4. CALCITROL [Concomitant]
     Route: 048
  5. CARVEDILOL [Concomitant]
     Dosage: 3.5G TUBE
     Route: 065
  6. CINACALCET [Concomitant]
     Dosage: 45 MG GTUBE
     Route: 065
  7. CLONIDINE [Concomitant]
     Route: 048
  8. ENALAPRIL [Concomitant]
     Route: 048
  9. EPOETIN ALFA [Concomitant]
     Dosage: 750 UNITS
     Route: 058
  10. FERROUS SULFATE [Concomitant]
     Route: 048
  11. GENTAMICIN [Concomitant]
     Dosage: 1 VIAL
     Route: 065
  12. HEPARIN [Concomitant]
  13. NYSTATIN [Concomitant]
  14. POLYETHYLENE GLYCOL 3350 [Concomitant]
     Route: 065
  15. RANITIDINE [Concomitant]
     Dosage: G-TUBE
     Route: 065
  16. SEVELAMER [Concomitant]
     Dosage: G-TUBE
     Route: 065

REACTIONS (11)
  - Peritonitis bacterial [Recovered/Resolved]
  - Vomiting [Unknown]
  - Hypophagia [Unknown]
  - Cough [Unknown]
  - Vulvovaginal pruritus [Unknown]
  - Decreased appetite [Unknown]
  - Dizziness [Unknown]
  - Headache [Unknown]
  - Vomiting [Unknown]
  - Constipation [Unknown]
  - Dizziness [Unknown]
